FAERS Safety Report 25447834 (Version 3)
Quarter: 2025Q3

REPORT INFORMATION
  Report Type: Report from Study
  Country: SG (occurrence: SG)
  Receive Date: 20250617
  Receipt Date: 20250815
  Transmission Date: 20251020
  Serious: Yes (Other)
  Sender: PHARMING GROUP
  Company Number: SG-PHARMING-PHASG2025000858

PATIENT

DRUGS (8)
  1. LENIOLISIB PHOSPHATE [Suspect]
     Active Substance: LENIOLISIB PHOSPHATE
     Indication: Activated PI3 kinase delta syndrome
     Dosage: 20 MILLIGRAM, BID
     Dates: start: 20241219
  2. LENIOLISIB PHOSPHATE [Suspect]
     Active Substance: LENIOLISIB PHOSPHATE
     Dosage: 50 MILLIGRAM, QD (20 MG ONCE A DAY, 30 MG ONCE A DAY)
  3. HUMAN IMMUNOGLOBULIN G [Concomitant]
     Active Substance: HUMAN IMMUNOGLOBULIN G
     Indication: Sinusitis
     Route: 058
  4. HUMAN IMMUNOGLOBULIN G [Concomitant]
     Active Substance: HUMAN IMMUNOGLOBULIN G
     Indication: Otitis media
  5. PENICILLIN G [Concomitant]
     Active Substance: PENICILLIN G
     Indication: Prophylaxis
  6. SIROLIMUS [Concomitant]
     Active Substance: SIROLIMUS
     Indication: Product used for unknown indication
  7. AMOX                               /00249601/ [Concomitant]
     Indication: Prophylaxis
  8. AUGMENTIN                          /00756801/ [Concomitant]
     Indication: Infection

REACTIONS (2)
  - Drug ineffective [Recovering/Resolving]
  - Epistaxis [Recovered/Resolved]

NARRATIVE: CASE EVENT DATE: 20241221
